FAERS Safety Report 24622991 (Version 2)
Quarter: 2024Q4

REPORT INFORMATION
  Report Type: Spontaneous
  Country: US (occurrence: US)
  Receive Date: 20241115
  Receipt Date: 20241218
  Transmission Date: 20250114
  Serious: No
  Sender: ALEXION PHARMACEUTICALS
  Company Number: US-AstraZeneca-CH-00738119AP

PATIENT
  Age: 65 Year

DRUGS (8)
  1. EXENATIDE [Suspect]
     Active Substance: EXENATIDE
     Route: 065
  2. EXENATIDE [Suspect]
     Active Substance: EXENATIDE
     Route: 065
  3. EXENATIDE [Suspect]
     Active Substance: EXENATIDE
     Route: 065
  4. EXENATIDE [Suspect]
     Active Substance: EXENATIDE
     Route: 065
  5. BYDUREON BCISE [Suspect]
     Active Substance: EXENATIDE
     Dosage: 2 MILLIGRAM
  6. BYDUREON BCISE [Suspect]
     Active Substance: EXENATIDE
     Dosage: 2 MILLIGRAM
     Route: 055
  7. BYDUREON BCISE [Suspect]
     Active Substance: EXENATIDE
     Dosage: 2 MILLIGRAM
  8. BYDUREON BCISE [Suspect]
     Active Substance: EXENATIDE
     Dosage: 2 MILLIGRAM
     Route: 055

REACTIONS (5)
  - Tremor [Unknown]
  - Needle issue [Unknown]
  - Drug dose omission by device [Unknown]
  - Product dose omission issue [Unknown]
  - Device leakage [Unknown]
